FAERS Safety Report 5568144-9 (Version None)
Quarter: 2007Q4

REPORT INFORMATION
  Report Type: 
  Country: None (occurrence: None)
  Receive Date: 20071220
  Receipt Date: 20071211
  Transmission Date: 20080405
  Serious: Yes (Life-Threatening, Hospitalization)
  Sender: FDA-Public Use
  Company Number: US-JNJFOC-20070901544

PATIENT
  Sex: Female

DRUGS (7)
  1. REMICADE [Suspect]
     Route: 042
  2. REMICADE [Suspect]
     Indication: RHEUMATOID ARTHRITIS
     Route: 042
  3. SULFASALAZINE [Concomitant]
  4. PREDNISONE [Concomitant]
  5. NSAIDS [Concomitant]
  6. HYDROXYCHLOROQUINE SULFATE [Concomitant]
  7. LEFLUNOMIDE [Concomitant]

REACTIONS (3)
  - CEREBROVASCULAR ACCIDENT [None]
  - HOSPITALISATION [None]
  - LOWER LIMB FRACTURE [None]
